FAERS Safety Report 23113596 (Version 3)
Quarter: 2023Q4

REPORT INFORMATION
  Report Type: Report from Study
  Country: US (occurrence: US)
  Receive Date: 20231027
  Receipt Date: 20231122
  Transmission Date: 20240110
  Serious: Yes (Hospitalization)
  Sender: FDA-Public Use
  Company Number: US-JNJFOC-20231060385

PATIENT
  Age: 3 Decade
  Sex: Male

DRUGS (18)
  1. INFLIXIMAB [Suspect]
     Active Substance: INFLIXIMAB
     Indication: Inflammatory bowel disease
     Route: 041
     Dates: start: 20120825, end: 20190314
  2. HUMIRA [Concomitant]
     Active Substance: ADALIMUMAB
  3. FOLIC ACID [Concomitant]
     Active Substance: FOLIC ACID
  4. PREGABALIN [Concomitant]
     Active Substance: PREGABALIN
  5. AMITRIPTYLINE HYDROCHLORIDE [Concomitant]
     Active Substance: AMITRIPTYLINE HYDROCHLORIDE
  6. ONDANSETRON [Concomitant]
     Active Substance: ONDANSETRON
  7. ATROVENT HFA [Concomitant]
     Active Substance: IPRATROPIUM BROMIDE
  8. LIDOCAINE [Concomitant]
     Active Substance: LIDOCAINE
  9. ACETAMINOPHEN\HYDROCODONE [Concomitant]
     Active Substance: ACETAMINOPHEN\HYDROCODONE
  10. ACETAMINOPHEN [Concomitant]
     Active Substance: ACETAMINOPHEN
  11. ASPARTAME [Concomitant]
     Active Substance: ASPARTAME
  12. HYDROMORPHONE [Concomitant]
     Active Substance: HYDROMORPHONE
  13. PANTOPRAZOLE [Concomitant]
     Active Substance: PANTOPRAZOLE
  14. LOPERAMIDE [Concomitant]
     Active Substance: LOPERAMIDE
  15. CLINDAMYCIN PHOSPHATE [Concomitant]
     Active Substance: CLINDAMYCIN PHOSPHATE
  16. TOFACITINIB [Concomitant]
     Active Substance: TOFACITINIB
  17. ERGOCALCIFEROL [Concomitant]
     Active Substance: ERGOCALCIFEROL
  18. HERBALS\PLANTAGO OVATA SEED COAT [Concomitant]
     Active Substance: HERBALS\PLANTAGO OVATA SEED COAT

REACTIONS (1)
  - Crohn^s disease [Recovered/Resolved]

NARRATIVE: CASE EVENT DATE: 20220213
